FAERS Safety Report 9844869 (Version 1)
Quarter: 2014Q1

REPORT INFORMATION
  Report Type: Spontaneous
  Country: US (occurrence: None)
  Receive Date: 20140122
  Receipt Date: 20140122
  Transmission Date: 20141002
  Serious: Yes (Death)
  Sender: FDA-Public Use
  Company Number: B0960112A

PATIENT
  Age: 34 Year
  Sex: Male

DRUGS (14)
  1. TOPIRAMATE [Suspect]
     Route: 048
  2. CLOPIDOGREL [Suspect]
     Route: 048
  3. PROPRANOLOL HYDROCHLORIDE [Suspect]
     Route: 048
  4. CARVEDILOL [Suspect]
     Route: 048
  5. LURASIDONE [Suspect]
     Route: 048
  6. RANOLAZINE [Suspect]
     Route: 048
  7. MIRTAZAPINE [Suspect]
     Route: 048
  8. VILAZODONE [Suspect]
     Route: 048
  9. MILNACIPRAN [Suspect]
     Route: 048
  10. HYDROCODONE + PARACETAMOL [Suspect]
     Route: 048
  11. SIMVASTATIN [Concomitant]
     Route: 048
  12. SALICYLATE [Suspect]
     Route: 048
  13. ALPRAZOLAM [Suspect]
     Route: 048
  14. HYDROXYZINE [Suspect]
     Route: 048

REACTIONS (2)
  - Completed suicide [None]
  - Cardio-respiratory arrest [None]
